FAERS Safety Report 24293192 (Version 1)
Quarter: 2024Q3

REPORT INFORMATION
  Report Type: Spontaneous
  Country: US (occurrence: None)
  Receive Date: 20240906
  Receipt Date: 20240906
  Transmission Date: 20241017
  Serious: No
  Sender: DOMPE FARMACEUTICI
  Company Number: US-FARMAPROD-202312-3588

PATIENT
  Sex: Female

DRUGS (10)
  1. OXERVATE [Suspect]
     Active Substance: CENEGERMIN-BKBJ
     Indication: Neurotrophic keratopathy
     Route: 047
     Dates: start: 20231127
  2. VALACYCLOVIR [Concomitant]
     Active Substance: VALACYCLOVIR HYDROCHLORIDE
  3. LYSINE [Concomitant]
     Active Substance: LYSINE
  4. BIOTIN [Concomitant]
     Active Substance: BIOTIN
  5. VITAMIN C [Concomitant]
     Active Substance: ASCORBIC ACID
  6. ALPRAZOLAM [Concomitant]
     Active Substance: ALPRAZOLAM
  7. EXCEDRIN EXTRA STRENGTH [Concomitant]
     Active Substance: ACETAMINOPHEN\ASPIRIN\CAFFEINE
  8. VITAMIN D-400 [Concomitant]
  9. MURO-128 [Concomitant]
  10. VITAMIN A [Concomitant]
     Active Substance: VITAMIN A

REACTIONS (5)
  - Eye pain [Not Recovered/Not Resolved]
  - Photophobia [Not Recovered/Not Resolved]
  - Eyelid pain [Unknown]
  - Vision blurred [Unknown]
  - Lacrimation increased [Unknown]
